FAERS Safety Report 19653592 (Version 2)
Quarter: 2021Q3

REPORT INFORMATION
  Report Type: Spontaneous
  Country: US (occurrence: US)
  Receive Date: 20210803
  Receipt Date: 20210818
  Transmission Date: 20211014
  Serious: No
  Sender: FDA-Public Use
  Company Number: US-SA-2021SA252357

PATIENT
  Sex: Female

DRUGS (1)
  1. LANTUS SOLOSTAR [Suspect]
     Active Substance: INSULIN GLARGINE
     Indication: TYPE 1 DIABETES MELLITUS
     Dosage: 6?8 UNITS AT BEDTIME
     Route: 065
     Dates: start: 202001

REACTIONS (2)
  - Blood glucose increased [Not Recovered/Not Resolved]
  - Intentional product use issue [Not Recovered/Not Resolved]
